FAERS Safety Report 17579221 (Version 2)
Quarter: 2020Q2

REPORT INFORMATION
  Report Type: Spontaneous
  Country: US (occurrence: US)
  Receive Date: 20200325
  Receipt Date: 20200405
  Transmission Date: 20200713
  Serious: No
  Sender: FDA-Public Use
  Company Number: US-AMGEN INC.-USASP2020045545

PATIENT
  Age: 79 Year
  Sex: Female
  Weight: 82.99 kg

DRUGS (1)
  1. AIMOVIG [Suspect]
     Active Substance: ERENUMAB-AOOE
     Indication: PRODUCT USED FOR UNKNOWN INDICATION
     Dosage: 70 MILLIGRAM
     Route: 065
     Dates: start: 20190722

REACTIONS (3)
  - Incorrect dose administered [Unknown]
  - Device use error [Unknown]
  - Headache [Unknown]

NARRATIVE: CASE EVENT DATE: 20200312
